FAERS Safety Report 5906580-9 (Version None)
Quarter: 2008Q4

REPORT INFORMATION
  Report Type: 
  Country: None (occurrence: None)
  Receive Date: 20081002
  Receipt Date: 20080918
  Transmission Date: 20090506
  Serious: No
  Sender: FDA-Public Use
  Company Number: US-B.I. PHARMACEUTICALS,INC./RIDGEFIELD-2008-BP-14716BP

PATIENT
  Age: 80 Year
  Sex: Male

DRUGS (3)
  1. ATROVENT [Suspect]
     Indication: SINUS CONGESTION
     Route: 045
     Dates: start: 20080815
  2. NORVASC [Concomitant]
     Indication: HYPERTENSION
  3. DIOVAN [Concomitant]
     Indication: HYPERTENSION

REACTIONS (1)
  - SINUSITIS [None]
